FAERS Safety Report 15905944 (Version 1)
Quarter: 2019Q1

REPORT INFORMATION
  Report Type: Spontaneous
  Country: US (occurrence: US)
  Receive Date: 20190202
  Receipt Date: 20190202
  Transmission Date: 20190417
  Serious: Yes (Other)
  Sender: FDA-Public Use
  Company Number: None

PATIENT
  Age: 82 Year
  Sex: Female
  Weight: 58.5 kg

DRUGS (8)
  1. DILTIAZEM, 125 MG/125ML [Concomitant]
     Active Substance: DILTIAZEM
  2. BABY ASPIRIN [Concomitant]
     Active Substance: ASPIRIN
  3. MULTI VITAMIN, IRON AND FLUORIDE [Concomitant]
     Active Substance: .ALPHA.-TOCOPHEROL\ASCORBIC ACID\CHOLECALCIFEROL\IRON\NIACINAMIDE\PYRIDOXINE HYDROCHLORIDE\RIBOFLAVIN 5^-PHOSPHATE SODIUM\SODIUM FLUORIDE\THIAMINE HYDROCHLORIDE\VITAMIN A PALMITATE
  4. ELIQUIS [Suspect]
     Active Substance: APIXABAN
     Indication: ATRIAL FIBRILLATION
     Dosage: ?          QUANTITY:1 TABLET(S);?
     Route: 048
     Dates: start: 20180518, end: 20181207
  5. LEVOTHYROXINE. [Concomitant]
     Active Substance: LEVOTHYROXINE
  6. PREMARIN CREAM [Concomitant]
  7. EXEDRIN MIGRAINE [Concomitant]
  8. OSTEO BI FLEX [Concomitant]

REACTIONS (2)
  - Urinary incontinence [None]
  - Anal incontinence [None]

NARRATIVE: CASE EVENT DATE: 20180630
